FAERS Safety Report 15209787 (Version 1)
Quarter: 2018Q3

REPORT INFORMATION
  Report Type: Spontaneous
  Country: US (occurrence: US)
  Receive Date: 20180629
  Receipt Date: 20180629
  Transmission Date: 20181010
  Serious: Yes (Life-Threatening, Hospitalization, Other)
  Sender: FDA-Public Use
  Company Number: None

PATIENT
  Age: 28 Year
  Sex: Female

DRUGS (1)
  1. MONSEL [Suspect]
     Active Substance: FERRIC SUBSULFATE

REACTIONS (3)
  - Skin haemorrhage [None]
  - Post procedural complication [None]
  - Surgical procedure repeated [None]

NARRATIVE: CASE EVENT DATE: 20180514
